FAERS Safety Report 6531294-4 (Version None)
Quarter: 2010Q1

REPORT INFORMATION
  Report Type: 
  Country: None (occurrence: None)
  Receive Date: 20100108
  Receipt Date: 20071012
  Transmission Date: 20100710
  Serious: Yes (Other)
  Sender: FDA-Public Use
  Company Number: CA-ASTRAZENECA-2007UW23906

PATIENT
  Age: 55 Year
  Sex: Male
  Weight: 123 kg

DRUGS (16)
  1. CRESTOR [Suspect]
     Indication: HYPERLIPIDAEMIA
     Route: 048
     Dates: start: 20050501, end: 20061217
  2. APO-FENO-SUPER [Suspect]
     Route: 048
     Dates: start: 20040802, end: 20061218
  3. EZETROL [Suspect]
     Route: 048
  4. ALTACE [Concomitant]
     Route: 048
  5. ASPIRIN [Concomitant]
     Route: 048
  6. BACLOFEN [Concomitant]
     Route: 048
  7. BUSCOPAN [Concomitant]
     Route: 048
  8. CLONAZEPAM [Concomitant]
     Route: 048
  9. FUROSEMIDE [Concomitant]
     Route: 048
  10. METFORMIN HCL [Concomitant]
     Route: 048
  11. METOPROLOL TARTRATE [Concomitant]
     Route: 048
  12. NITROGLYCERIN [Concomitant]
  13. NORVASC [Concomitant]
     Route: 048
  14. PAROXETINE [Concomitant]
     Route: 048
  15. RANITIDINE [Concomitant]
     Route: 048
  16. TRAZODONE HCL [Concomitant]
     Route: 048

REACTIONS (5)
  - BLOOD CREATINE PHOSPHOKINASE INCREASED [None]
  - CHEST PAIN [None]
  - FATIGUE [None]
  - MUSCLE SPASMS [None]
  - RHABDOMYOLYSIS [None]
